FAERS Safety Report 9410825 (Version 3)
Quarter: 2021Q3

REPORT INFORMATION
  Report Type: Spontaneous
  Country: AU (occurrence: AU)
  Receive Date: 20130719
  Receipt Date: 20210708
  Transmission Date: 20211014
  Serious: Yes (Hospitalization)
  Sender: FDA-Public Use
  Company Number: AU-PFIZER INC-2013201877

PATIENT
  Age: 64 Year
  Sex: Female

DRUGS (9)
  1. DIGOXIN. [Interacting]
     Active Substance: DIGOXIN
     Indication: CARDIOMYOPATHY
  2. NORADRENALINE [Concomitant]
     Active Substance: NOREPINEPHRINE
     Indication: SINUS TACHYCARDIA
     Dosage: UNK
     Route: 065
  3. ESOMEPRAZOLE. [Concomitant]
     Active Substance: ESOMEPRAZOLE MAGNESIUM
     Dosage: 40 MG, UNK
     Route: 065
  4. EPINEPHRINE. [Interacting]
     Active Substance: EPINEPHRINE
     Indication: CARDIOMYOPATHY
  5. EPINEPHRINE. [Suspect]
     Active Substance: EPINEPHRINE
     Indication: SINUS TACHYCARDIA
     Dosage: UNK
     Route: 065
  6. AMIODARONE [Interacting]
     Active Substance: AMIODARONE
     Indication: ATRIAL FIBRILLATION
     Dosage: 1200 MG, DAILY (OVER 24 HOURS)
     Route: 042
  7. ERYTHROMYCIN. [Interacting]
     Active Substance: ERYTHROMYCIN
     Indication: SEPSIS
     Dosage: 100 MG, UNK
     Route: 042
  8. DIGOXIN. [Interacting]
     Active Substance: DIGOXIN
     Indication: STRESS CARDIOMYOPATHY
     Dosage: 0.5 MG, SINGLE (0.5 MG, ONCE)
     Route: 042
  9. AMIODARONE [Interacting]
     Active Substance: AMIODARONE
     Indication: CARDIOVERSION

REACTIONS (5)
  - Toxicity to various agents [Recovered/Resolved]
  - Nodal arrhythmia [Recovering/Resolving]
  - Atrial fibrillation [Recovering/Resolving]
  - Drug interaction [Recovered/Resolved]
  - Hyperkalaemia [Recovering/Resolving]
